FAERS Safety Report 20061620 (Version 1)
Quarter: 2021Q4

REPORT INFORMATION
  Report Type: Spontaneous
  Country: BR (occurrence: None)
  Receive Date: 20211112
  Receipt Date: 20211112
  Transmission Date: 20220303
  Serious: Yes (Other)
  Sender: FDA-Public Use
  Company Number: BR-ROCHE-2951011

PATIENT
  Age: 5 Year
  Weight: 15 kg

DRUGS (7)
  1. ACTEMRA [Suspect]
     Active Substance: TOCILIZUMAB
     Indication: Juvenile idiopathic arthritis
     Route: 042
  2. METHYLPREDNISOLONE [Concomitant]
     Active Substance: METHYLPREDNISOLONE
  3. PREDNISOLONE [Concomitant]
     Active Substance: PREDNISOLONE
  4. METHOTREXATE [Concomitant]
     Active Substance: METHOTREXATE
  5. ABATACEPT [Concomitant]
     Active Substance: ABATACEPT
  6. CANAKINUMAB [Concomitant]
     Active Substance: CANAKINUMAB
  7. ETANERCEPT [Concomitant]
     Active Substance: ETANERCEPT

REACTIONS (7)
  - Anaphylactic shock [Recovered/Resolved]
  - Drug ineffective [Unknown]
  - Polyarthritis [Not Recovered/Not Resolved]
  - Anaemia [Not Recovered/Not Resolved]
  - Thrombocytosis [Not Recovered/Not Resolved]
  - Red blood cell sedimentation rate increased [Not Recovered/Not Resolved]
  - C-reactive protein increased [Not Recovered/Not Resolved]
